FAERS Safety Report 5343424-0 (Version None)
Quarter: 2007Q2

REPORT INFORMATION
  Report Type: 
  Country: None (occurrence: None)
  Receive Date: 20070531
  Receipt Date: 20070425
  Transmission Date: 20071010
  Serious: Yes (Hospitalization)
  Sender: FDA-Public Use
  Company Number: FR-GUERBET-20070100

PATIENT
  Age: 48 Year
  Sex: Female
  Weight: 54 kg

DRUGS (17)
  1. DOTAREM: / MEGLUMINE GADOTERATE [Suspect]
     Indication: NUCLEAR MAGNETIC RESONANCE IMAGING
     Dosage: 15, ML MILLILTRE(S), , ?, TOTAL
     Route: 042
     Dates: start: 20070216, end: 20070216
  2. NEORECORMON / EPOETIN BETA [Concomitant]
  3. PERFALGAN / PARACETAMOL [Concomitant]
  4. POLARAMINE [Concomitant]
  5. CLONAZEPAM [Concomitant]
  6. DUROGESIC MATRIX / FENTANYL [Concomitant]
  7. RENAGEL / SEVELAMER [Concomitant]
  8. OROCAL / CALCIUM CARBONATE [Concomitant]
  9. LEVOTHYROX / LEVOTHYROXINE [Concomitant]
  10. ANAFRANIL [Concomitant]
  11. KARDEGIC / ACETYLSALICYLIC ACID [Concomitant]
  12. SECTRAL [Concomitant]
  13. TRANXENE / CLORAZEPATE MONOPOTASSIUM [Concomitant]
  14. EPIVIR [Concomitant]
  15. VIDEX [Concomitant]
  16. HYDROCORTISONE / HYDROCORTISONE [Concomitant]
  17. FOSAMAX [Concomitant]

REACTIONS (13)
  - ABDOMINAL PAIN [None]
  - ANTI-HBS ANTIBODY [None]
  - BACK PAIN [None]
  - BONE PAIN [None]
  - C-REACTIVE PROTEIN INCREASED [None]
  - CARDIOMEGALY [None]
  - DERMATITIS [None]
  - HAEMOGLOBIN DECREASED [None]
  - RETICULOCYTE COUNT ABNORMAL [None]
  - SERUM FERRITIN INCREASED [None]
  - SKIN INFLAMMATION [None]
  - SKIN ULCER [None]
  - TRANSFERRIN DECREASED [None]
